FAERS Safety Report 25094946 (Version 1)
Quarter: 2025Q1

REPORT INFORMATION
  Report Type: Report from Study
  Country: US (occurrence: US)
  Receive Date: 20250319
  Receipt Date: 20250319
  Transmission Date: 20250409
  Serious: Yes (Other)
  Sender: ALEXION PHARMACEUTICALS
  Company Number: US-AstraZeneca-CH-00826171A

PATIENT
  Weight: 74 kg

DRUGS (3)
  1. CAPIVASERTIB [Suspect]
     Active Substance: CAPIVASERTIB
     Indication: Breast cancer female
     Dosage: 400 MILLIGRAM, BID
  2. ONDANSETRON [Concomitant]
     Active Substance: ONDANSETRON
     Route: 065
  3. ZOLEDRONIC ACID [Concomitant]
     Active Substance: ZOLEDRONIC ACID
     Route: 065

REACTIONS (2)
  - Hepatitis [Unknown]
  - Rash [Unknown]
